FAERS Safety Report 8843906 (Version 2)
Quarter: 2012Q4

REPORT INFORMATION
  Report Type: 
  Country: US (occurrence: US)
  Receive Date: 20121016
  Receipt Date: 20121101
  Transmission Date: 20130627
  Serious: Yes (Hospitalization)
  Sender: FDA-Public Use
  Company Number: US-PFIZER INC-2012253948

PATIENT
  Age: 22 Year
  Sex: Male

DRUGS (2)
  1. BENEFIX [Suspect]
     Indication: FACTOR IX DEFICIENCY
     Dosage: 1000 IU, as needed
     Dates: start: 20111006
  2. BENEFIX [Suspect]
     Indication: BLEEDING

REACTIONS (1)
  - Haemarthrosis [Recovered/Resolved]
